FAERS Safety Report 5066736-7 (Version None)
Quarter: 2006Q3

REPORT INFORMATION
  Report Type: 
  Country: None (occurrence: None)
  Receive Date: 20060714
  Receipt Date: 20051213
  Transmission Date: 20061208
  Serious: Yes (Other)
  Sender: FDA-Public Use
  Company Number: HQWYE556621APR04

PATIENT
  Sex: Female

DRUGS (4)
  1. ADVIL [Suspect]
     Indication: PAIN
     Dosage: 2 TABLETS ONE TIME, ORAL
     Route: 048
     Dates: start: 20020101, end: 20020101
  2. COUMADIN [Concomitant]
  3. ENTEX LA (GUAIFENESIN/PHENYLPROPANOLAMINE HYDROCHLORIDE) [Concomitant]
  4. SYNTHROID [Concomitant]

REACTIONS (3)
  - ANAPHYLACTIC SHOCK [None]
  - DYSPNOEA [None]
  - HYPERSENSITIVITY [None]
